FAERS Safety Report 8337131 (Version 7)
Quarter: 2012Q4

REPORT INFORMATION
  Report Type: 
  Country: US (occurrence: US)
  Receive Date: 20120113
  Receipt Date: 20121130
  Transmission Date: 20130627
  Serious: Yes (Hospitalization, Other)
  Sender: FDA-Public Use
  Company Number: US-PFIZER INC-2012007990

PATIENT
  Age: 49 Year
  Sex: Female

DRUGS (4)
  1. CHANTIX [Suspect]
     Indication: SMOKING CESSATION THERAPY
     Dosage: 0.5 mg, QD
     Route: 048
     Dates: start: 20111230, end: 20120103
  2. ASA [Concomitant]
     Dosage: 81 mg, 2 tablets
  3. CLONAZEPAM [Concomitant]
     Dosage: 0.5 mg, 3x/day
  4. AMBIEN [Concomitant]
     Dosage: UNK

REACTIONS (5)
  - Transient ischaemic attack [Recovered/Resolved]
  - Head injury [Unknown]
  - Headache [Unknown]
  - Sensory disturbance [Unknown]
  - Paraesthesia [Recovered/Resolved]
